FAERS Safety Report 8906147 (Version 1)
Quarter: 2012Q4

REPORT INFORMATION
  Report Type: Report from Study
  Country: JP (occurrence: JP)
  Receive Date: 20121110
  Receipt Date: 20121110
  Transmission Date: 20130627
  Serious: Yes (Death, Disabling)
  Sender: FDA-Public Use
  Company Number: JP-009507513-2009SP008207

PATIENT
  Age: 31 Year
  Sex: Female
  Weight: 48 kg

DRUGS (11)
  1. TEMOZOLOMIDE [Suspect]
     Indication: ANAPLASTIC ASTROCYTOMA
     Dosage: UNK
     Route: 048
     Dates: start: 20060722, end: 20060726
  2. TEMOZOLOMIDE [Suspect]
     Dosage: 150 mg/m2, QD
     Route: 048
     Dates: start: 20061004, end: 20061008
  3. TEMOZOLOMIDE [Suspect]
     Dosage: 150 mg/m2, QD
     Route: 048
     Dates: start: 20061101, end: 20061105
  4. TEMOZOLOMIDE [Suspect]
     Dosage: 150 mg/m2, QD
     Route: 048
     Dates: start: 20061206, end: 20061210
  5. TEMOZOLOMIDE [Suspect]
     Dosage: 150 mg/m2, QD
     Route: 048
     Dates: start: 20061229, end: 20070102
  6. TEMOZOLOMIDE [Suspect]
     Dosage: 150 mg/m2, QD
     Route: 048
     Dates: start: 20070207, end: 20070211
  7. TEMOZOLOMIDE [Suspect]
     Dosage: 150 mg/m2, QD
     Route: 048
     Dates: start: 20070307, end: 20070311
  8. MYSLEE [Concomitant]
     Route: 048
     Dates: start: 20061201
  9. LOXONIN [Concomitant]
     Route: 048
     Dates: start: 20061226
  10. CEPHARANTHINE [Concomitant]
     Indication: PROPHYLAXIS
     Dosage: UNK
     Route: 048
     Dates: start: 20061004, end: 20061102
  11. DEPAKENE [Concomitant]
     Route: 048

REACTIONS (10)
  - Disease progression [Fatal]
  - Memory impairment [Not Recovered/Not Resolved]
  - Lymphocyte count decreased [Recovered/Resolved]
  - Basophil count decreased [Recovered/Resolved]
  - Otitis media chronic [Recovering/Resolving]
  - White blood cell count decreased [Recovered/Resolved]
  - Thrombocytopenia [Not Recovered/Not Resolved]
  - Blood urea increased [Recovered/Resolved]
  - Insomnia [Recovered/Resolved]
  - Dysmenorrhoea [Recovered/Resolved]
